FAERS Safety Report 7354775-2 (Version None)
Quarter: 2011Q1

REPORT INFORMATION
  Report Type: 
  Country: None (occurrence: None)
  Receive Date: 20110316
  Receipt Date: 20100412
  Transmission Date: 20110831
  Serious: Yes (Hospitalization)
  Sender: FDA-Public Use
  Company Number: DE-CELGENEUS-062-21880-10010968

PATIENT
  Age: 63 Year
  Sex: Male
  Weight: 94 kg

DRUGS (10)
  1. DEXAMETHASONE [Concomitant]
     Indication: PLASMACYTOMA
     Dosage: 20 MILLIGRAM
     Route: 048
     Dates: start: 20080812, end: 20091116
  2. ZOMETA [Concomitant]
     Dosage: .1429 MILLIGRAM
     Route: 051
  3. CLEXANE [Concomitant]
     Indication: PROPHYLAXIS
     Dosage: .2
     Route: 065
     Dates: start: 20080812
  4. REVLIMID [Suspect]
     Dosage: 25 MILLIGRAM
     Route: 048
     Dates: start: 20091201
  5. PANTOZOL [Concomitant]
     Dosage: 20
     Route: 065
  6. REVLIMID [Suspect]
     Indication: PLASMACYTOMA
     Dosage: 25 MILLIGRAM
     Route: 048
     Dates: start: 20080812, end: 20091116
  7. REVLIMID [Suspect]
     Dosage: 25 MILLIGRAM
     Route: 048
     Dates: end: 20101004
  8. BELOC ZOK [Concomitant]
     Dosage: 47.5 MILLIGRAM
     Route: 065
  9. DEXAMETHASONE [Concomitant]
     Dosage: 20 MILLIGRAM
     Route: 065
     Dates: end: 20101004
  10. HUMALOG [Concomitant]
     Indication: DIABETES MELLITUS
     Dosage: DEPENDING ON BLOOD SUGAR
     Route: 065

REACTIONS (2)
  - SARCOMA [None]
  - WOUND [None]
